FAERS Safety Report 17111014 (Version 3)
Quarter: 2020Q1

REPORT INFORMATION
  Report Type: Report from Study
  Country: PH (occurrence: PH)
  Receive Date: 20191204
  Receipt Date: 20200210
  Transmission Date: 20200409
  Serious: Yes (Death, Other)
  Sender: FDA-Public Use
  Company Number: NVSC2019PH057632

PATIENT
  Age: 15 Year
  Sex: Female

DRUGS (7)
  1. TASIGNA [Suspect]
     Active Substance: NILOTINIB
     Indication: CHRONIC MYELOID LEUKAEMIA
     Dosage: 4 DF
     Route: 065
  2. TASIGNA [Suspect]
     Active Substance: NILOTINIB
     Dosage: 5 DF
     Route: 065
  3. VORICONAZOLE. [Concomitant]
     Active Substance: VORICONAZOLE
     Indication: PRODUCT USED FOR UNKNOWN INDICATION
     Route: 042
  4. FLUDARABINE [Concomitant]
     Active Substance: FLUDARABINE PHOSPHATE
     Indication: ALLOGENIC STEM CELL TRANSPLANTATION
     Route: 065
  5. METHYLPREDNISOLONE. [Concomitant]
     Active Substance: METHYLPREDNISOLONE
     Indication: PRODUCT USED FOR UNKNOWN INDICATION
     Route: 065
  6. GANCICLOVIR. [Concomitant]
     Active Substance: GANCICLOVIR
     Indication: PRODUCT USED FOR UNKNOWN INDICATION
     Dosage: 5 MG/KG, Q12H (14 DAYS)
     Route: 042
  7. CYCLOPHOSPHAMIDE. [Concomitant]
     Active Substance: CYCLOPHOSPHAMIDE
     Indication: ALLOGENIC STEM CELL TRANSPLANTATION
     Route: 065

REACTIONS (7)
  - Bone marrow disorder [Fatal]
  - Acute lymphocytic leukaemia [Unknown]
  - Cytomegalovirus infection [Fatal]
  - Metastases to central nervous system [Fatal]
  - Graft versus host disease in gastrointestinal tract [Fatal]
  - Pneumonia [Fatal]
  - Immunosuppression [Fatal]

NARRATIVE: CASE EVENT DATE: 20190930
